FAERS Safety Report 8988672 (Version 1)
Quarter: 2012Q4

REPORT INFORMATION
  Report Type: 
  Country: US (occurrence: US)
  Receive Date: 20121227
  Receipt Date: 20121227
  Transmission Date: 20130627
  Serious: Yes (Death, Hospitalization)
  Sender: FDA-Public Use
  Company Number: US-GILEAD-2012-0066029

PATIENT
  Sex: Female

DRUGS (2)
  1. LETAIRIS [Suspect]
     Indication: PULMONARY ARTERIAL HYPERTENSION
     Dosage: 5 mg, QD
     Route: 048
     Dates: start: 20120120
  2. ADCIRCA [Concomitant]

REACTIONS (5)
  - Acute respiratory distress syndrome [Fatal]
  - Mitral valve repair [Unknown]
  - Aortic valve replacement [Unknown]
  - Tricuspid valve repair [Unknown]
  - Atrial septal defect [Unknown]
